FAERS Safety Report 4622647-X (Version None)
Quarter: 2005Q1

REPORT INFORMATION
  Report Type: 
  Country: None (occurrence: None)
  Receive Date: 20050330
  Receipt Date: 20050222
  Transmission Date: 20050727
  Serious: Yes (Life-Threatening, Hospitalization, Disabling)
  Sender: FDA-Public Use
  Company Number: US-MERCK-0502USA02778

PATIENT
  Age: 62 Year
  Sex: Male

DRUGS (11)
  1. VIOXX [Suspect]
     Indication: RHEUMATOID ARTHRITIS
     Route: 048
     Dates: start: 20020101, end: 20020101
  2. VIOXX [Suspect]
     Route: 048
     Dates: start: 20030101
  3. VIOXX [Suspect]
     Route: 048
     Dates: start: 20030101
  4. VIOXX [Suspect]
     Route: 048
     Dates: start: 20040101, end: 20040818
  5. VIOXX [Suspect]
     Route: 048
     Dates: start: 20040201, end: 20040101
  6. VIOXX [Suspect]
     Indication: MYALGIA
     Route: 048
     Dates: start: 20020101, end: 20020101
  7. VIOXX [Suspect]
     Route: 048
     Dates: start: 20030101
  8. VIOXX [Suspect]
     Route: 048
     Dates: start: 20030101
  9. VIOXX [Suspect]
     Route: 048
     Dates: start: 20040101, end: 20040818
  10. VIOXX [Suspect]
     Route: 048
     Dates: start: 20040201, end: 20040101
  11. ATENOLOL [Suspect]
     Indication: HYPERTENSION
     Route: 065
     Dates: start: 20040201, end: 20040101

REACTIONS (4)
  - ADVERSE EVENT [None]
  - NEPHROLITHIASIS [None]
  - PAIN [None]
  - STOMACH DISCOMFORT [None]
